FAERS Safety Report 15701673 (Version 3)
Quarter: 2018Q4

REPORT INFORMATION
  Report Type: Report from Study
  Country: JP (occurrence: JP)
  Receive Date: 20181208
  Receipt Date: 20181222
  Transmission Date: 20190205
  Serious: Yes (Death, Life-Threatening, Other)
  Sender: FDA-Public Use
  Company Number: JP-AMGEN-JPNCT2018175815

PATIENT
  Sex: Male
  Weight: 41.1 kg

DRUGS (4)
  1. FLUOROURACIL. [Concomitant]
     Active Substance: FLUOROURACIL
     Indication: COLON CANCER
     Dosage: 2850 MG, UNK
     Route: 041
     Dates: start: 20181029, end: 20181114
  2. CALCIUM LEVOFOLINATE [Concomitant]
     Active Substance: LEVOLEUCOVORIN CALCIUM
     Indication: COLON CANCER
     Dosage: 300 MG, UNK
     Route: 041
     Dates: start: 20181029, end: 20181112
  3. IRINOTECAN HYDROCHLORIDE. [Concomitant]
     Active Substance: IRINOTECAN HYDROCHLORIDE
     Indication: COLON CANCER
     Dosage: 215 MG, UNK
     Route: 041
     Dates: start: 20181029, end: 20181112
  4. PANITUMUMAB [Suspect]
     Active Substance: PANITUMUMAB
     Indication: COLON CANCER
     Dosage: 200 MG, Q2WK INJECTION
     Route: 041
     Dates: start: 20181029, end: 20181112

REACTIONS (5)
  - Colon cancer [Fatal]
  - Platelet count decreased [Recovered/Resolved]
  - Cholangitis [Fatal]
  - Pneumonia [Fatal]
  - Neutrophil count decreased [Recovered/Resolved]

NARRATIVE: CASE EVENT DATE: 20181120
